FAERS Safety Report 7930709-4 (Version None)
Quarter: 2011Q4

REPORT INFORMATION
  Report Type: 
  Country: None (occurrence: None)
  Receive Date: 20111121
  Receipt Date: 20111116
  Transmission Date: 20120403
  Serious: Yes (Hospitalization, Other)
  Sender: FDA-Public Use
  Company Number: US-PFIZER INC-2011281237

PATIENT
  Age: 33 Year
  Sex: Female
  Weight: 65.76 kg

DRUGS (2)
  1. EFFEXOR XR [Suspect]
     Indication: DEPRESSION
     Dosage: 112.5 MG, DAILY ((ONE CAPSULE OF 75MG WITH ANOTHER OF 37.5MG)
     Route: 048
  2. YAZ [Concomitant]
     Indication: ORAL CONTRACEPTION
     Dosage: UNK

REACTIONS (3)
  - MALAISE [None]
  - DRUG WITHDRAWAL SYNDROME [None]
  - DRUG DEPENDENCE [None]
